FAERS Safety Report 5336782-4 (Version None)
Quarter: 2007Q2

REPORT INFORMATION
  Report Type: 
  Country: None (occurrence: None)
  Receive Date: 20070529
  Receipt Date: 20070517
  Transmission Date: 20071010
  Serious: Yes (Other)
  Sender: FDA-Public Use
  Company Number: JP-ROCHE-498786

PATIENT
  Age: 4 Year
  Sex: Female

DRUGS (4)
  1. TAMIFLU [Suspect]
     Dosage: REPORTED AS DRY SYRUP.
     Route: 048
     Dates: start: 20070315, end: 20070315
  2. TOMIRON [Concomitant]
     Dosage: REPORTED AS TOMIRON FINE GRANULE (CEFTERAM PIVOXIL) AT 180 MG SPILT INTO THREE DOSES.
     Dates: start: 20070314, end: 20070314
  3. MUCODYNE [Concomitant]
     Dosage: REPORTED AS MUCODYNE FINE GRANULE (L-CARBOCISTEINE) AT 450 MG SPILT INTO THREE DOSES
     Dates: start: 20070314, end: 20070314
  4. CALONAL [Concomitant]
     Dosage: REPORTED AS CALONAL FINE GRANULE (ACETAMINOPHEN) AT 150 MG AS NEEDED.
     Dates: start: 20070314, end: 20070314

REACTIONS (1)
  - ABNORMAL BEHAVIOUR [None]
